FAERS Safety Report 23303089 (Version 1)
Quarter: 2023Q4

REPORT INFORMATION
  Report Type: Spontaneous
  Country: GB (occurrence: GB)
  Receive Date: 20231215
  Receipt Date: 20231215
  Transmission Date: 20240109
  Serious: Yes (Other)
  Sender: FDA-Public Use
  Company Number: GB-SUN PHARMACEUTICAL INDUSTRIES LTD-2023RR-423215

PATIENT
  Age: 17 Year
  Sex: Male

DRUGS (1)
  1. ISOTRETINOIN [Suspect]
     Active Substance: ISOTRETINOIN
     Indication: Acne
     Dosage: 60MG ONCE A DAY, UNK
     Route: 065
     Dates: start: 20230620, end: 20231130

REACTIONS (1)
  - Self-injurious ideation [Recovering/Resolving]

NARRATIVE: CASE EVENT DATE: 20231116
